FAERS Safety Report 5218781-6 (Version None)
Quarter: 2007Q1

REPORT INFORMATION
  Report Type: 
  Country: None (occurrence: None)
  Receive Date: 20070123
  Receipt Date: 20070112
  Transmission Date: 20070707
  Serious: Yes (Hospitalization, Disabling)
  Sender: FDA-Public Use
  Company Number: 2007AL000263

PATIENT
  Age: 73 Year
  Sex: Female

DRUGS (1)
  1. AMANTADINE HCL [Suspect]
     Indication: PARKINSON'S DISEASE
     Dosage: 300MG;QD;PO
     Route: 048

REACTIONS (9)
  - BEDRIDDEN [None]
  - CEREBRAL INFARCTION [None]
  - COMA [None]
  - DEMENTIA [None]
  - DRUG TOXICITY [None]
  - LACUNAR INFARCTION [None]
  - MYOCLONUS [None]
  - NEUROLEPTIC MALIGNANT SYNDROME [None]
  - STATUS EPILEPTICUS [None]
